FAERS Safety Report 25499445 (Version 1)
Quarter: 2025Q3

REPORT INFORMATION
  Report Type: Spontaneous
  Country: EU (occurrence: EU)
  Receive Date: 20250701
  Receipt Date: 20250701
  Transmission Date: 20251021
  Serious: Yes (Hospitalization)
  Sender: REGENERON
  Company Number: None

PATIENT
  Age: 43 Year
  Sex: Female

DRUGS (1)
  1. LIBTAYO [Suspect]
     Active Substance: CEMIPLIMAB-RWLC
     Indication: Squamous cell carcinoma
     Dosage: 350 MG, QD
     Route: 042
     Dates: start: 20250521, end: 20250521

REACTIONS (5)
  - Erythema multiforme [Not Recovered/Not Resolved]
  - Pemphigoid [Not Recovered/Not Resolved]
  - Skin erosion [Not Recovered/Not Resolved]
  - Blister [Not Recovered/Not Resolved]
  - Scab [Not Recovered/Not Resolved]

NARRATIVE: CASE EVENT DATE: 20250526
